FAERS Safety Report 9767169 (Version 1)
Quarter: 2013Q4

REPORT INFORMATION
  Report Type: Spontaneous
  Country: FR (occurrence: None)
  Receive Date: 20131213
  Receipt Date: 20131213
  Transmission Date: 20140711
  Serious: No
  Sender: FDA-Public Use
  Company Number: FR-2013-4090

PATIENT
  Age: 55 Year
  Sex: Female

DRUGS (2)
  1. NAVELBINE [Suspect]
     Indication: BREAST CANCER METASTATIC
     Route: 042
     Dates: start: 20120712, end: 20130812
  2. HERCEPTIN [Suspect]
     Route: 042
     Dates: start: 20081222, end: 20130722

REACTIONS (1)
  - Microangiopathy [None]
